FAERS Safety Report 19613940 (Version 1)
Quarter: 2021Q3

REPORT INFORMATION
  Report Type: Spontaneous
  Country: US (occurrence: US)
  Receive Date: 20210726
  Receipt Date: 20210726
  Transmission Date: 20211014
  Serious: No
  Sender: FDA-Public Use
  Company Number: None

PATIENT
  Age: 80 Year
  Sex: Female

DRUGS (1)
  1. OTEZLA [Suspect]
     Active Substance: APREMILAST
     Indication: PSORIATIC ARTHROPATHY
     Dosage: TAKE AS DIRECTED, FOR 28 DAYS
     Dates: start: 201602

REACTIONS (3)
  - Therapy interrupted [None]
  - Cardiac dysfunction [None]
  - Cardiac valve disease [None]
